FAERS Safety Report 13051992 (Version 1)
Quarter: 2016Q4

REPORT INFORMATION
  Report Type: Spontaneous
  Country: US (occurrence: US)
  Receive Date: 20161221
  Receipt Date: 20161221
  Transmission Date: 20170207
  Serious: Yes (Death)
  Sender: FDA-Public Use
  Company Number: US-HAEMONETICS CORP-1061116

PATIENT
  Age: 33 Year
  Sex: Male
  Weight: 77.73 kg

DRUGS (2)
  1. 0.9% SODIUM CHLORIDE INJECTION, USP [Concomitant]
     Active Substance: SODIUM CHLORIDE
     Route: 042
     Dates: start: 20161125, end: 20161125
  2. HAEMONETICS ANTICOAGULANT SODIUM CITRATE [Suspect]
     Active Substance: TRISODIUM CITRATE DIHYDRATE
     Indication: ANTICOAGULANT THERAPY
     Route: 042
     Dates: start: 20161125, end: 20161125

REACTIONS (1)
  - Death [Fatal]

NARRATIVE: CASE EVENT DATE: 20161126
